FAERS Safety Report 5866513-0 (Version None)
Quarter: 2008Q3

REPORT INFORMATION
  Report Type: 
  Country: None (occurrence: None)
  Receive Date: 20080902
  Receipt Date: 20080902
  Transmission Date: 20090109
  Serious: Yes (Hospitalization)
  Sender: FDA-Public Use
  Company Number: PHEH1995US02045

PATIENT
  Sex: Female
  Weight: 109.8 kg

DRUGS (6)
  1. SANDIMMUNE [Suspect]
     Route: 042
     Dates: start: 19950304, end: 19950309
  2. IMURAN [Concomitant]
  3. LASIX [Concomitant]
  4. MAGNESIUM OXIDE [Concomitant]
  5. MYALEX TROCHE (MYALGOL) [Concomitant]
  6. PREDNISONE TAB [Concomitant]

REACTIONS (4)
  - OLIGURIA [None]
  - PYREXIA [None]
  - RENAL FAILURE ACUTE [None]
  - WHITE BLOOD CELL COUNT INCREASED [None]
